FAERS Safety Report 4596748-9 (Version None)
Quarter: 2005Q1

REPORT INFORMATION
  Report Type: 
  Country: None (occurrence: None)
  Receive Date: 20050302
  Receipt Date: 20050218
  Transmission Date: 20050727
  Serious: Yes (Hospitalization)
  Sender: FDA-Public Use
  Company Number: DE-NOVOPROD-242418

PATIENT
  Age: 46 Year
  Sex: Male

DRUGS (11)
  1. NOVONORM [Suspect]
     Indication: DIABETES MELLITUS
     Dosage: 1 MG, QD
     Route: 048
     Dates: start: 20031015, end: 20031113
  2. HALDOL [Concomitant]
     Dosage: 15 MG, QD
     Dates: start: 20031015, end: 20031028
  3. HALDOL [Concomitant]
     Dosage: 20 MG, QD
     Dates: start: 20031029, end: 20031030
  4. HALDOL [Concomitant]
     Dosage: 10 MG, QD
     Dates: start: 20031031, end: 20031031
  5. HYPNOREX [Suspect]
     Dosage: 1000 MG, QD
     Dates: start: 20031027, end: 20031103
  6. CLOZAPINE [Concomitant]
     Dosage: 150 MG, QD
     Dates: start: 20031015, end: 20031026
  7. TAVOR [Concomitant]
     Dosage: 3 MG, QD
     Dates: start: 20031029, end: 20031113
  8. CONVULEX ^BYK GULDEN^ [Suspect]
     Dosage: 900 MG, QD
     Dates: start: 20031030, end: 20031103
  9. CIATYL-Z [Suspect]
     Dosage: 25 MG, QD
     Dates: start: 20031031, end: 20031031
  10. CIATYL-Z [Suspect]
     Dosage: 75 MG, QD
     Dates: start: 20031101, end: 20031105
  11. GLUCOPHAGE [Suspect]
     Dosage: 850 MG, QD
     Dates: start: 20031015, end: 20031024

REACTIONS (2)
  - DELIRIUM [None]
  - DRUG INTERACTION [None]
